FAERS Safety Report 9011387 (Version 2)
Quarter: 2013Q1

REPORT INFORMATION
  Report Type: Spontaneous
  Country: US (occurrence: US)
  Receive Date: 20130108
  Receipt Date: 20130123
  Transmission Date: 20140127
  Serious: No
  Sender: FDA-Public Use
  Company Number: US-PFIZER INC-2013003555

PATIENT
  Age: 59 Year
  Sex: Male
  Weight: 90.7 kg

DRUGS (4)
  1. NORVASC [Suspect]
     Indication: HYPERTENSION
     Dosage: 5 MG, DAILY
     Route: 065
     Dates: start: 201212
  2. LOSARTAN [Suspect]
     Indication: HYPERTENSION
     Dosage: 100 MG, DAILY
     Route: 065
     Dates: start: 201212
  3. ASPIRIN [Concomitant]
     Indication: CEREBROVASCULAR ACCIDENT PROPHYLAXIS
     Dosage: 81 MG, DAILY
     Route: 065
  4. ASPIRIN [Concomitant]
     Indication: PROPHYLAXIS

REACTIONS (3)
  - Myalgia [Not Recovered/Not Resolved]
  - Muscle fatigue [Not Recovered/Not Resolved]
  - Muscle spasms [Not Recovered/Not Resolved]
